FAERS Safety Report 7684496-8 (Version None)
Quarter: 2011Q3

REPORT INFORMATION
  Report Type: 
  Country: None (occurrence: None)
  Receive Date: 20110816
  Receipt Date: 20110802
  Transmission Date: 20111222
  Serious: No
  Sender: FDA-Public Use
  Company Number: US-BIOGENIDEC-2011BI029589

PATIENT
  Sex: Female

DRUGS (1)
  1. TYSABRI [Suspect]
     Indication: MULTIPLE SCLEROSIS
     Route: 042
     Dates: start: 20100317

REACTIONS (8)
  - CHOKING [None]
  - HEAD TITUBATION [None]
  - NASOPHARYNGITIS [None]
  - POSTURE ABNORMAL [None]
  - ASTHENIA [None]
  - MALAISE [None]
  - PALLOR [None]
  - WEIGHT DECREASED [None]
